FAERS Safety Report 9782336 (Version 5)
Quarter: 2014Q1

REPORT INFORMATION
  Report Type: Report from Study
  Country: BR (occurrence: BR)
  Receive Date: 20131226
  Receipt Date: 20140304
  Transmission Date: 20141002
  Serious: Yes (Hospitalization)
  Sender: FDA-Public Use
  Company Number: PHHO2013BR016625

PATIENT
  Age: 11 Year
  Sex: Female
  Weight: 49 kg

DRUGS (2)
  1. ACZ885 [Suspect]
     Indication: JUVENILE IDIOPATHIC ARTHRITIS
     Dosage: 4 MG/KG, ONCE A MONTH
     Route: 058
     Dates: start: 20110906, end: 20131128
  2. METHOTREXATE [Suspect]
     Indication: JUVENILE IDIOPATHIC ARTHRITIS
     Dosage: 15 MG, QW
     Route: 048
     Dates: start: 20091015

REACTIONS (1)
  - Pneumonia bacterial [Recovered/Resolved]
